FAERS Safety Report 22381797 (Version 1)
Quarter: 2023Q2

REPORT INFORMATION
  Report Type: Spontaneous
  Country: JP (occurrence: JP)
  Receive Date: 20230530
  Receipt Date: 20230530
  Transmission Date: 20230722
  Serious: Yes (Hospitalization, Other)
  Sender: FDA-Public Use
  Company Number: JP-ASTELLAS-2023JP006155

PATIENT
  Age: 76 Year
  Sex: Female

DRUGS (3)
  1. MIRABEGRON [Suspect]
     Active Substance: MIRABEGRON
     Indication: Product used for unknown indication
     Dosage: UNK UNK, UNKNOWN FREQ.
     Route: 048
  2. CARVEDILOL [Concomitant]
     Active Substance: CARVEDILOL
     Indication: Cardiac disorder
     Dosage: UNK UNK, UNKNOWN FREQ.
     Route: 048
  3. ACETAMINOPHEN [Concomitant]
     Active Substance: ACETAMINOPHEN
     Indication: Vulvovaginal pain
     Dosage: 10 TABLETS, UNKNOWN FREQ.
     Route: 048

REACTIONS (9)
  - Abdominal pain [Unknown]
  - Incarcerated hernia [Unknown]
  - Gait disturbance [Recovering/Resolving]
  - Motor dysfunction [Unknown]
  - Vulvovaginal pain [Recovering/Resolving]
  - Cardiac disorder [Unknown]
  - Blood pressure decreased [Unknown]
  - Dizziness [Unknown]
  - Intentional dose omission [Unknown]

NARRATIVE: CASE EVENT DATE: 20230301
